FAERS Safety Report 17083767 (Version 1)
Quarter: 2019Q4

REPORT INFORMATION
  Report Type: Spontaneous
  Country: US (occurrence: US)
  Receive Date: 20191127
  Receipt Date: 20191127
  Transmission Date: 20200122
  Serious: No
  Sender: FDA-Public Use
  Company Number: US-ASTRAZENECA-2019SF53735

PATIENT
  Age: 49 Year
  Sex: Female
  Weight: 81.6 kg

DRUGS (7)
  1. BYDUREON BCISE [Suspect]
     Active Substance: EXENATIDE
     Indication: GLYCOSYLATED HAEMOGLOBIN ABNORMAL
     Route: 058
     Dates: start: 201811
  2. SYNJARDY XR [Concomitant]
     Active Substance: EMPAGLIFLOZIN\METFORMIN HYDROCHLORIDE
     Indication: TYPE 2 DIABETES MELLITUS
     Route: 048
  3. LISINOPRIL. [Concomitant]
     Active Substance: LISINOPRIL
     Indication: HYPERTENSION
     Route: 048
  4. BYDUREON BCISE [Suspect]
     Active Substance: EXENATIDE
     Indication: CARDIAC DISORDER
     Route: 058
     Dates: start: 201811
  5. BYDUREON BCISE [Suspect]
     Active Substance: EXENATIDE
     Indication: TYPE 2 DIABETES MELLITUS
     Route: 058
     Dates: start: 201811
  6. GENERIC CRESTOR [Suspect]
     Active Substance: ROSUVASTATIN CALCIUM
     Indication: BLOOD CHOLESTEROL INCREASED
     Route: 048
  7. SYNJARDY XR [Concomitant]
     Active Substance: EMPAGLIFLOZIN\METFORMIN HYDROCHLORIDE
     Indication: CARDIAC DISORDER
     Route: 048

REACTIONS (6)
  - Weight increased [Recovered/Resolved]
  - Glycosylated haemoglobin increased [Recovering/Resolving]
  - Cardiac disorder [Unknown]
  - Type 2 diabetes mellitus [Not Recovered/Not Resolved]
  - Injection site pain [Recovered/Resolved]
  - Device leakage [Unknown]

NARRATIVE: CASE EVENT DATE: 2019
